FAERS Safety Report 9918884 (Version 1)
Quarter: 2014Q1

REPORT INFORMATION
  Report Type: Spontaneous
  Country: US (occurrence: US)
  Receive Date: 20140224
  Receipt Date: 20140224
  Transmission Date: 20141002
  Serious: Yes (Other)
  Sender: FDA-Public Use
  Company Number: US-PFIZER INC-2014047473

PATIENT
  Sex: Female

DRUGS (2)
  1. ADVIL PM [Suspect]
     Indication: SLEEP DISORDER
     Dosage: UNK
     Route: 048
  2. ADVIL PM [Suspect]
     Indication: ARTHRALGIA

REACTIONS (7)
  - Drug administration error [Unknown]
  - Product label issue [Unknown]
  - Poor quality drug administered [Unknown]
  - Gastric haemorrhage [Unknown]
  - Somnolence [Unknown]
  - Gastric disorder [Unknown]
  - Gastritis [Unknown]
